FAERS Safety Report 4868646-4 (Version None)
Quarter: 2005Q4

REPORT INFORMATION
  Report Type: 
  Country: None (occurrence: None)
  Receive Date: 20051223
  Receipt Date: 20051206
  Transmission Date: 20060501
  Serious: Yes (Other)
  Sender: FDA-Public Use
  Company Number: FR_051007369

PATIENT
  Age: 70 Year
  Sex: Female
  Weight: 58 kg

DRUGS (3)
  1. EVISTA [Suspect]
     Indication: OSTEOPOROSIS
     Dosage: 60  MG, DAILY (1/D), ORAL
     Route: 048
     Dates: start: 20011122, end: 20041001
  2. LEVOTHYROXINE SODIUM [Concomitant]
  3. OROCAL D (3) (CALCIUM CARBONATE, COLECALCIFEROL) TABLET [Concomitant]

REACTIONS (1)
  - RETINAL VEIN THROMBOSIS [None]
